FAERS Safety Report 9616588 (Version 1)
Quarter: 2013Q4

REPORT INFORMATION
  Report Type: Spontaneous
  Country: BE (occurrence: BE)
  Receive Date: 20131011
  Receipt Date: 20131011
  Transmission Date: 20140711
  Serious: Yes (Other)
  Sender: FDA-Public Use
  Company Number: BE-BAYER-2013-118920

PATIENT
  Age: 5 Year
  Sex: Female

DRUGS (6)
  1. AVELOX [Suspect]
     Dosage: UNK
     Dates: start: 20130206, end: 20130302
  2. VANCOMYCIN [Concomitant]
     Dosage: UNK
     Dates: start: 20130212, end: 20130301
  3. TAZOCIN [Concomitant]
     Dosage: UNK
     Dates: start: 20130206, end: 20130222
  4. MOTILIUM [Concomitant]
     Dosage: UNK
     Dates: start: 20130126, end: 20130214
  5. ZANTAC [Concomitant]
     Dosage: UNK
     Dates: start: 20130126, end: 20130214
  6. TEICOPLANIN [Concomitant]
     Dosage: UNK
     Dates: start: 20130306

REACTIONS (10)
  - Drug reaction with eosinophilia and systemic symptoms [None]
  - Drug reaction with eosinophilia and systemic symptoms [None]
  - Rash generalised [None]
  - Rash maculo-papular [None]
  - Leukocytosis [None]
  - Eosinophil count increased [None]
  - Hypersensitivity [None]
  - Hyperthermia [None]
  - Toxic skin eruption [None]
  - Off label use [None]
